FAERS Safety Report 8943957 (Version 1)
Quarter: 2012Q4

REPORT INFORMATION
  Report Type: Spontaneous
  Country: US (occurrence: None)
  Receive Date: 20121205
  Receipt Date: 20121205
  Transmission Date: 20130627
  Serious: Yes (Disabling)
  Sender: FDA-Public Use
  Company Number: None

PATIENT
  Age: 46 Year
  Sex: Female
  Weight: 92.99 kg

DRUGS (2)
  1. STEROID INJECTION POSSIBLE METHYLPREDNISOLONE [Suspect]
     Indication: BACK PAIN
     Dates: start: 20120529
  2. STEROID INJECTION POSSIBLE METHYLPREDNISOLONE [Suspect]
     Indication: PAIN IN HIP
     Dates: start: 20120529

REACTIONS (1)
  - Therapeutic product ineffective [None]
